FAERS Safety Report 21724686 (Version 1)
Quarter: 2022Q4

REPORT INFORMATION
  Report Type: Spontaneous
  Country: None (occurrence: GB)
  Receive Date: 20221213
  Receipt Date: 20221213
  Transmission Date: 20230112
  Serious: Yes (Disabling, Other)
  Sender: FDA-Public Use
  Company Number: GB-B.Braun Medical Inc.-2135844

PATIENT
  Age: 67 Year
  Sex: Female
  Weight: 82.55 kg

DRUGS (2)
  1. METRONIDAZOLE [Suspect]
     Active Substance: METRONIDAZOLE
     Indication: Product used for unknown indication
     Route: 065
  2. D+C YELLOW NO. 10 [Suspect]
     Active Substance: D+C YELLOW NO. 10
     Route: 065

REACTIONS (5)
  - Peripheral swelling [Recovering/Resolving]
  - Tendonitis [Recovering/Resolving]
  - Oedema peripheral [Recovering/Resolving]
  - Pain [Not Recovered/Not Resolved]
  - Diarrhoea [Recovering/Resolving]
